FAERS Safety Report 4391965-5 (Version None)
Quarter: 2004Q3

REPORT INFORMATION
  Report Type: 
  Country: None (occurrence: None)
  Receive Date: 20040701
  Receipt Date: 20040621
  Transmission Date: 20050211
  Serious: Yes (Hospitalization, Other)
  Sender: FDA-Public Use
  Company Number: HQWYE291407JUN04

PATIENT
  Age: 29 Year
  Sex: Male
  Weight: 77.18 kg

DRUGS (4)
  1. EFFEXOR XR [Suspect]
     Indication: MAJOR DEPRESSION
     Dosage: SEE IMAGE
     Route: 048
     Dates: end: 20040419
  2. EFFEXOR XR [Suspect]
     Indication: MAJOR DEPRESSION
     Dosage: SEE IMAGE
     Route: 048
  3. EFFEXOR XR [Suspect]
     Indication: MAJOR DEPRESSION
     Dosage: SEE IMAGE
     Route: 048
     Dates: start: 20030807
  4. SEROQUEL [Concomitant]

REACTIONS (7)
  - CONDITION AGGRAVATED [None]
  - DRUG WITHDRAWAL SYNDROME [None]
  - LACERATION [None]
  - MANIA [None]
  - OBSESSIVE-COMPULSIVE DISORDER [None]
  - SELF MUTILATION [None]
  - SUICIDAL IDEATION [None]
